FAERS Safety Report 23701928 (Version 1)
Quarter: 2024Q2

REPORT INFORMATION
  Report Type: Spontaneous
  Country: US (occurrence: None)
  Receive Date: 20240402
  Receipt Date: 20240402
  Transmission Date: 20240716
  Serious: Yes (Other)
  Sender: FDA-Public Use
  Company Number: None

PATIENT
  Sex: Female

DRUGS (9)
  1. MYCOPHENOLIC ACID [Suspect]
     Active Substance: MYCOPHENOLIC ACID
     Indication: Renal transplant
     Dosage: FREQ: TAKE 1 CAPSULE (250 MG TOTAL) BY MOUTH IN THE MORNING AND 1 CAPSULE (250 MG TOTAL) IN THE EVEN
     Route: 048
     Dates: start: 20180720
  2. ATORVASTATIN [Concomitant]
  3. ATROVENT HFA AER [Concomitant]
  4. CELLCEPT [Concomitant]
  5. CITALOPRAM [Concomitant]
     Active Substance: CITALOPRAM\CITALOPRAM HYDROBROMIDE
  6. CYCLOBENZAPRINE HCL [Concomitant]
  7. ENALAPRIL [Concomitant]
  8. FLOVENT HFA [Concomitant]
     Active Substance: FLUTICASONE PROPIONATE
  9. HYDROCO/APAP [Concomitant]

REACTIONS (1)
  - Blood pressure abnormal [None]
